FAERS Safety Report 22179163 (Version 1)
Quarter: 2023Q2

REPORT INFORMATION
  Report Type: Spontaneous
  Country: JP (occurrence: JP)
  Receive Date: 20230406
  Receipt Date: 20230406
  Transmission Date: 20230722
  Serious: Yes (Death, Life-Threatening, Other)
  Sender: FDA-Public Use
  Company Number: JP-BAXTER-2023BAX017153

PATIENT
  Age: 69 Year
  Sex: Female

DRUGS (5)
  1. DOXORUBICIN [Suspect]
     Active Substance: DOXORUBICIN
     Indication: Diffuse large B-cell lymphoma
     Dosage: R-CHOP THERAPY FOR UP TO 7 CYCLES
     Route: 065
     Dates: start: 2017, end: 2018
  2. CYCLOPHOSPHAMIDE [Suspect]
     Active Substance: CYCLOPHOSPHAMIDE
     Indication: Diffuse large B-cell lymphoma
     Dosage: R-CHOP THERAPY FOR UP TO 7 CYCLES
     Route: 065
     Dates: start: 2017, end: 2018
  3. RITUXIMAB [Suspect]
     Active Substance: RITUXIMAB
     Indication: Diffuse large B-cell lymphoma
     Dosage: R-CHOP THERAPY FOR UP TO 7 CYCLES
     Route: 065
     Dates: start: 2017, end: 2018
  4. VINCRISTINE [Suspect]
     Active Substance: VINCRISTINE
     Indication: Diffuse large B-cell lymphoma
     Dosage: R-CHOP THERAPY FOR UP TO 7 CYCLES
     Route: 065
     Dates: start: 2017, end: 2018
  5. PREDNISONE [Suspect]
     Active Substance: PREDNISONE
     Indication: Diffuse large B-cell lymphoma
     Dosage: R-CHOP THERAPY FOR UP TO 7 CYCLES
     Route: 065
     Dates: start: 2017, end: 2018

REACTIONS (8)
  - Acute promyelocytic leukaemia [Fatal]
  - Chronic myelomonocytic leukaemia [Recovered/Resolved]
  - Febrile neutropenia [Unknown]
  - KMT2A gene mutation [Unknown]
  - N-ras gene mutation [Unknown]
  - Chromosomal deletion [Unknown]
  - Gene mutation [Unknown]
  - Anaemia [Unknown]

NARRATIVE: CASE EVENT DATE: 20170101
